FAERS Safety Report 5616003-5 (Version None)
Quarter: 2008Q1

REPORT INFORMATION
  Report Type: 
  Country: None (occurrence: None)
  Receive Date: 20080206
  Receipt Date: 20080128
  Transmission Date: 20080703
  Serious: Yes (Other)
  Sender: FDA-Public Use
  Company Number: US-PURDUE-USA_2008_0031198

PATIENT
  Sex: Male

DRUGS (2)
  1. OXYCONTIN [Suspect]
     Indication: BACK PAIN
     Dates: start: 20071225, end: 20080101
  2. PERCOCET [Suspect]
     Indication: BACK PAIN
     Dates: end: 20080101

REACTIONS (4)
  - HALLUCINATION [None]
  - INCORRECT DRUG ADMINISTRATION DURATION [None]
  - SURGERY [None]
  - TONGUE DISORDER [None]
